FAERS Safety Report 18325481 (Version 1)
Quarter: 2020Q3

REPORT INFORMATION
  Report Type: Spontaneous
  Country: US (occurrence: US)
  Receive Date: 20200929
  Receipt Date: 20200929
  Transmission Date: 20201103
  Serious: No
  Sender: FDA-Public Use
  Company Number: US-PFIZER INC-2020372945

PATIENT
  Age: 58 Year
  Sex: Female
  Weight: 90.7 kg

DRUGS (9)
  1. IBRANCE [Suspect]
     Active Substance: PALBOCICLIB
     Indication: BREAST CANCER
     Dosage: 125 MG, CYCLIC: DAILY FOR 21 DAYS
     Route: 048
     Dates: start: 20200907
  2. SUPER B COMPLEX [VITAMIN B COMPLEX] [Concomitant]
     Dosage: UNK
  3. VITAMIN D [ERGOCALCIFEROL] [Concomitant]
     Active Substance: ERGOCALCIFEROL
     Dosage: UNK [VITAMIN D?400 10 MCG]
  4. KRILL OIL [Concomitant]
     Active Substance: DIETARY SUPPLEMENT\KRILL OIL
     Dosage: UNK [1000?130 MG]
  5. TAMOXIFEN CITRATE. [Concomitant]
     Active Substance: TAMOXIFEN CITRATE
     Dosage: UNK
  6. KELP [IODINE] [Concomitant]
     Dosage: UNK
  7. CAL MAG ZINC+D [Concomitant]
     Dosage: UNK (333MG?133 TABLET)
  8. CALCIUM [Concomitant]
     Active Substance: CALCIUM
     Dosage: UNK (500 MG?100 TAB CHEW)
  9. MAGNESIUM [Concomitant]
     Active Substance: MAGNESIUM
     Dosage: UNK

REACTIONS (1)
  - Abnormal dreams [Unknown]

NARRATIVE: CASE EVENT DATE: 20200923
